FAERS Safety Report 24119752 (Version 2)
Quarter: 2024Q3

REPORT INFORMATION
  Report Type: Spontaneous
  Country: JP (occurrence: JP)
  Receive Date: 20240722
  Receipt Date: 20240826
  Transmission Date: 20241016
  Serious: Yes (Hospitalization)
  Sender: BAYER
  Company Number: JP-BAYER-2024A105757

PATIENT
  Age: 74 Year
  Sex: Female
  Weight: 48 kg

DRUGS (4)
  1. GADOBUTROL [Suspect]
     Active Substance: GADOBUTROL
     Indication: Magnetic resonance imaging head
     Dosage: 5 ML, ONCE
     Route: 042
     Dates: start: 20240627, end: 20240627
  2. GADOBUTROL [Suspect]
     Active Substance: GADOBUTROL
     Indication: Brain neoplasm
  3. AMLODIPINE BESYLATE [Concomitant]
     Active Substance: AMLODIPINE BESYLATE
  4. AZILSARTAN KAMEDOXOMIL [Concomitant]
     Active Substance: AZILSARTAN KAMEDOXOMIL

REACTIONS (4)
  - Throat irritation [Recovered/Resolved]
  - Dysphonia [Recovered/Resolved]
  - Anaphylactic reaction [Recovered/Resolved]
  - Respiratory symptom [Recovered/Resolved]

NARRATIVE: CASE EVENT DATE: 20240627
